FAERS Safety Report 13014758 (Version 1)
Quarter: 2016Q4

REPORT INFORMATION
  Report Type: Spontaneous
  Country: AU (occurrence: AU)
  Receive Date: 20161209
  Receipt Date: 20161209
  Transmission Date: 20170207
  Serious: Yes (Other)
  Sender: FDA-Public Use
  Company Number: AU-PRINSTON PHARMACEUTICAL INC.-2016PRN00334

PATIENT
  Age: 85 Year
  Sex: Male

DRUGS (1)
  1. DONEPEZIL. [Suspect]
     Active Substance: DONEPEZIL
     Indication: DEMENTIA
     Dosage: 5 MG, 1X/DAY
     Route: 065
     Dates: start: 201409

REACTIONS (1)
  - Sexually inappropriate behaviour [Recovered/Resolved]
